FAERS Safety Report 11249306 (Version 1)
Quarter: 2015Q3

REPORT INFORMATION
  Report Type: Spontaneous
  Country: US (occurrence: US)
  Receive Date: 20150708
  Receipt Date: 20150708
  Transmission Date: 20151125
  Serious: Yes (Hospitalization)
  Sender: FDA-Public Use
  Company Number: US-ELI_LILLY_AND_COMPANY-US201001003521

PATIENT
  Age: 83 Year
  Sex: Female
  Weight: 72.11 kg

DRUGS (1)
  1. ALIMTA [Suspect]
     Active Substance: PEMETREXED DISODIUM
     Indication: UTERINE CANCER
     Dosage: 500 MG/M2, UNK
     Dates: start: 20091228

REACTIONS (3)
  - Mucosal inflammation [Unknown]
  - Off label use [Unknown]
  - Neutropenia [Not Recovered/Not Resolved]

NARRATIVE: CASE EVENT DATE: 20091228
